FAERS Safety Report 13797901 (Version 3)
Quarter: 2017Q3

REPORT INFORMATION
  Report Type: Spontaneous
  Country: AR (occurrence: AR)
  Receive Date: 20170727
  Receipt Date: 20170828
  Transmission Date: 20171127
  Serious: Yes (Death, Life-Threatening, Hospitalization, Other)
  Sender: FDA-Public Use
  Company Number: AR-009507513-1707ARG009516

PATIENT
  Age: 62 Year
  Sex: Male
  Weight: 92.66 kg

DRUGS (2)
  1. KEYTRUDA [Suspect]
     Active Substance: PEMBROLIZUMAB
     Dosage: SECOND CYCLE, 2 MG/KG, 180MG EVERY 21 DAYS, Q3W
     Dates: start: 20170717, end: 2017
  2. KEYTRUDA [Suspect]
     Active Substance: PEMBROLIZUMAB
     Indication: MALIGNANT MELANOMA
     Dosage: (FIRST CYCYLE) 2 MG/KG, 180MG EVERY 21 DAYS, Q3W
     Dates: start: 20170623, end: 20170714

REACTIONS (17)
  - Lipase increased [Unknown]
  - Mechanical ventilation [Unknown]
  - Cardiac arrest [Unknown]
  - Pancreatitis [Unknown]
  - Vomiting [Unknown]
  - Nephritis [Unknown]
  - Amylase increased [Unknown]
  - Renal failure [Unknown]
  - Death [Fatal]
  - Bradycardia [Unknown]
  - Transaminases increased [Unknown]
  - Hyperglycaemia [Unknown]
  - Ketoacidosis [Unknown]
  - Sensory disturbance [Unknown]
  - Hypotension [Unknown]
  - Blood creatinine increased [Unknown]
  - Thyroiditis [Unknown]

NARRATIVE: CASE EVENT DATE: 201707
